FAERS Safety Report 5952645-5 (Version None)
Quarter: 2008Q4

REPORT INFORMATION
  Report Type: 
  Country: None (occurrence: None)
  Receive Date: 20081029
  Receipt Date: 20080811
  Transmission Date: 20090506
  Serious: Yes (Death, Other)
  Sender: FDA-Public Use
  Company Number: 175819USA

PATIENT
  Sex: Male

DRUGS (2)
  1. IFOSFAMIDE [Suspect]
     Indication: BURKITT'S LYMPHOMA
  2. IFOSFAMIDE [Suspect]

REACTIONS (2)
  - DEATH [None]
  - NEUROTOXICITY [None]
